FAERS Safety Report 22298246 (Version 1)
Quarter: 2023Q2

REPORT INFORMATION
  Report Type: Other
  Country: None (occurrence: US)
  Receive Date: 20230509
  Receipt Date: 20230509
  Transmission Date: 20230721
  Serious: Yes (Hospitalization, Other)
  Sender: FDA-Public Use
  Company Number: US-MSN LABORATORIES PRIVATE LIMITED-2141272

PATIENT
  Age: 68 Year
  Sex: Female

DRUGS (2)
  1. DECITABINE [Suspect]
     Active Substance: DECITABINE
     Indication: Acute myeloid leukaemia
     Route: 065
  2. VENETOCLAX [Suspect]
     Active Substance: VENETOCLAX
     Route: 065

REACTIONS (6)
  - Ventricular tachycardia [Unknown]
  - Pneumonia bacterial [Unknown]
  - Leukaemia cutis [Recovered/Resolved]
  - Atrial fibrillation [Unknown]
  - Febrile neutropenia [Unknown]
  - Neutropenia [Recovering/Resolving]
